FAERS Safety Report 9064797 (Version 5)
Quarter: 2013Q3

REPORT INFORMATION
  Report Type: Spontaneous
  Country: US (occurrence: US)
  Receive Date: 20130213
  Receipt Date: 20130724
  Transmission Date: 20140515
  Serious: Yes (Hospitalization, Other)
  Sender: FDA-Public Use
  Company Number: US-ROCHE-621412

PATIENT
  Age: 21 Year
  Sex: Female
  Weight: 49.9 kg

DRUGS (1)
  1. ACCUTANE [Suspect]
     Indication: ACNE
     Dosage: RX FILLED ON 9/15/2000, 10/24/2000, 11/24/2000, 12/27/2000, 1/21/2001
     Route: 048
     Dates: start: 20000915, end: 20010208

REACTIONS (13)
  - Crohn^s disease [Unknown]
  - Inflammatory bowel disease [Unknown]
  - Enteritis [Unknown]
  - Depression [Unknown]
  - Anal fistula [Unknown]
  - Large intestine polyp [Unknown]
  - Small intestinal obstruction [Unknown]
  - Weight decreased [Unknown]
  - Headache [Unknown]
  - Abdominal pain upper [Unknown]
  - Vomiting [Unknown]
  - Dry skin [Unknown]
  - Chest pain [Unknown]
